FAERS Safety Report 4832730-1 (Version None)
Quarter: 2005Q4

REPORT INFORMATION
  Report Type: 
  Country: None (occurrence: None)
  Receive Date: 20051117
  Receipt Date: 20051103
  Transmission Date: 20060501
  Serious: No
  Sender: FDA-Public Use
  Company Number: USA0511112678

PATIENT
  Sex: Male

DRUGS (1)
  1. CYMBALTA [Suspect]
     Dosage: 60 MG/2 DAY
     Dates: start: 20051003, end: 20051001

REACTIONS (3)
  - HEPATIC ENZYME ABNORMAL [None]
  - INCORRECT DOSE ADMINISTERED [None]
  - PRURITUS [None]
